FAERS Safety Report 9676918 (Version 1)
Quarter: 2013Q4

REPORT INFORMATION
  Report Type: Spontaneous
  Country: US (occurrence: US)
  Receive Date: 20131108
  Receipt Date: 20131108
  Transmission Date: 20140711
  Serious: No
  Sender: FDA-Public Use
  Company Number: US-SANOFI-AVENTIS-2013SA081096

PATIENT
  Age: 10 Year
  Sex: Male

DRUGS (1)
  1. ALLEGRA [Suspect]
     Indication: HYPERSENSITIVITY
     Route: 048
     Dates: end: 20130807

REACTIONS (3)
  - Oropharyngeal pain [Unknown]
  - Retching [Unknown]
  - Product quality issue [Unknown]
